FAERS Safety Report 5719606-2 (Version None)
Quarter: 2008Q2

REPORT INFORMATION
  Report Type: 
  Country: None (occurrence: None)
  Receive Date: 20080424
  Receipt Date: 20080421
  Transmission Date: 20081010
  Serious: Yes (Other)
  Sender: FDA-Public Use
  Company Number: A0723993A

PATIENT
  Age: 34 Year
  Sex: Female

DRUGS (1)
  1. METHYLCELLULOSE POWDER (METHYLCELLULOSE) [Suspect]
     Indication: HAEMORRHOIDS
     Dosage: ORAL
     Route: 048

REACTIONS (3)
  - ABDOMINAL DISTENSION [None]
  - CONSTIPATION [None]
  - HAEMORRHAGE [None]
